FAERS Safety Report 17047155 (Version 3)
Quarter: 2021Q1

REPORT INFORMATION
  Report Type: Other
  Country: ES (occurrence: ES)
  Receive Date: 20191119
  Receipt Date: 20210105
  Transmission Date: 20210419
  Serious: Yes (Other)
  Sender: FDA-Public Use
  Company Number: ES-ROCHE-2234769

PATIENT
  Age: 10 Year
  Sex: Female

DRUGS (12)
  1. MYCOPHENOLATE MOFETIL. [Suspect]
     Active Substance: MYCOPHENOLATE MOFETIL
     Indication: PROPHYLAXIS AGAINST GRAFT VERSUS HOST DISEASE
  2. PREDNISONE. [Suspect]
     Active Substance: PREDNISONE
     Indication: IMMUNOSUPPRESSANT DRUG THERAPY
     Route: 065
  3. ACICLOVIR [Suspect]
     Active Substance: ACYCLOVIR
     Indication: PROPHYLAXIS
     Route: 065
  4. SULFAMETHOXAZOLE [Concomitant]
     Active Substance: SULFAMETHOXAZOLE
     Indication: PROPHYLAXIS
  5. MYCOPHENOLATE MOFETIL. [Suspect]
     Active Substance: MYCOPHENOLATE MOFETIL
     Indication: IMMUNOSUPPRESSANT DRUG THERAPY
     Route: 065
  6. GRANULOCYTE COLONY STIMULATING FACTOR [Concomitant]
     Active Substance: GRANULOCYTE COLONY-STIMULATING FACTOR NOS
  7. TRIMETHOPRIM. [Concomitant]
     Active Substance: TRIMETHOPRIM
     Indication: PROPHYLAXIS
  8. THIOTEPA. [Suspect]
     Active Substance: THIOTEPA
     Indication: STEM CELL TRANSPLANT
     Dosage: 10 MG/KG FOR 1 DAY
     Route: 065
  9. MYCOPHENOLATE MOFETIL. [Suspect]
     Active Substance: MYCOPHENOLATE MOFETIL
     Indication: STEM CELL TRANSPLANT
  10. FLUDARABINE [Suspect]
     Active Substance: FLUDARABINE PHOSPHATE
     Indication: STEM CELL TRANSPLANT
  11. FLUDARABINE [Suspect]
     Active Substance: FLUDARABINE PHOSPHATE
     Indication: BONE MARROW CONDITIONING REGIMEN
     Route: 065
  12. MICAFUNGIN. [Concomitant]
     Active Substance: MICAFUNGIN SODIUM
     Indication: PROPHYLAXIS

REACTIONS (5)
  - Human herpesvirus 6 infection [Recovered/Resolved]
  - Acute graft versus host disease [Unknown]
  - Product use in unapproved indication [Unknown]
  - Encephalitis viral [Recovered/Resolved]
  - Off label use [Unknown]
